FAERS Safety Report 4382466-9 (Version None)
Quarter: 2004Q2

REPORT INFORMATION
  Report Type: 
  Country: None (occurrence: None)
  Receive Date: 20040617
  Receipt Date: 20040602
  Transmission Date: 20050107
  Serious: Yes (Hospitalization)
  Sender: FDA-Public Use
  Company Number: 2004GB01333

PATIENT
  Age: 78 Year
  Sex: Female

DRUGS (7)
  1. OMEPRAZOLE [Suspect]
     Dosage: 20 MG DAILY PO
     Route: 048
  2. ARICEPT [Suspect]
     Dosage: 10 MG DAILY PO
     Route: 048
  3. ASPIRIN [Suspect]
     Dosage: 75 MG DAILY PO
     Route: 048
  4. BENDROFLUAZIDE [Suspect]
     Dosage: 2.5 MG DAILY PO
     Route: 048
  5. ROFECOXIB [Suspect]
     Dosage: 12.5 MG DAILY PO
     Route: 048
  6. DOTHIEPIN HYDROCHLORIDE [Concomitant]
  7. ATORVASTATIN CALCIUM [Concomitant]

REACTIONS (3)
  - CONVULSION [None]
  - DIZZINESS [None]
  - TREMOR [None]
